FAERS Safety Report 21724515 (Version 1)
Quarter: 2022Q4

REPORT INFORMATION
  Report Type: Spontaneous
  Country: US (occurrence: US)
  Receive Date: 20221213
  Receipt Date: 20221213
  Transmission Date: 20230113
  Serious: No
  Sender: FDA-Public Use
  Company Number: US-Dermavant-000190

PATIENT

DRUGS (1)
  1. TAPINAROF [Suspect]
     Active Substance: TAPINAROF
     Dosage: AREA OF APPLICATION: FACE
     Route: 061

REACTIONS (2)
  - Application site erythema [Unknown]
  - Swelling face [Unknown]
